FAERS Safety Report 13447085 (Version 2)
Quarter: 2017Q2

REPORT INFORMATION
  Report Type: Spontaneous
  Country: US (occurrence: US)
  Receive Date: 20170417
  Receipt Date: 20170420
  Transmission Date: 20170830
  Serious: No
  Sender: FDA-Public Use
  Company Number: US-PFIZER INC-2017166607

PATIENT
  Sex: Female

DRUGS (2)
  1. CHANTIX [Suspect]
     Active Substance: VARENICLINE TARTRATE
     Dosage: UNK
  2. CHANTIX [Suspect]
     Active Substance: VARENICLINE TARTRATE
     Dosage: 1 MG, UNK

REACTIONS (10)
  - Abdominal distension [Unknown]
  - Dry mouth [Unknown]
  - Abdominal pain upper [Unknown]
  - Fatigue [Unknown]
  - Peripheral swelling [Unknown]
  - Discomfort [Unknown]
  - Thirst [Unknown]
  - Chest pain [Unknown]
  - Nausea [Unknown]
  - Decreased appetite [Unknown]
